FAERS Safety Report 19583025 (Version 1)
Quarter: 2021Q3

REPORT INFORMATION
  Report Type: Spontaneous
  Country: US (occurrence: US)
  Receive Date: 20210720
  Receipt Date: 20210720
  Transmission Date: 20211014
  Serious: No
  Sender: FDA-Public Use
  Company Number: None

PATIENT
  Age: 37 Year
  Sex: Female

DRUGS (1)
  1. VANCOMYCIN (VANCOMYCIN 1.5GM/VIL INJ) [Suspect]
     Active Substance: VANCOMYCIN
     Indication: SINUSITIS
     Dosage: ?          OTHER ROUTE:IV?
     Route: 042
     Dates: start: 20200812, end: 20200825

REACTIONS (6)
  - Pyrexia [None]
  - Hepatic enzyme increased [None]
  - Thrombocytopenia [None]
  - Urticaria [None]
  - Leukopenia [None]
  - Rash [None]

NARRATIVE: CASE EVENT DATE: 20200821
